FAERS Safety Report 12309798 (Version 1)
Quarter: 2016Q2

REPORT INFORMATION
  Report Type: Spontaneous
  Country: JP (occurrence: JP)
  Receive Date: 20160427
  Receipt Date: 20160427
  Transmission Date: 20160815
  Serious: Yes (Hospitalization)
  Sender: FDA-Public Use
  Company Number: JP-MYLANLABS-2016M1017111

PATIENT

DRUGS (4)
  1. FLURBIPROFEN. [Concomitant]
     Active Substance: FLURBIPROFEN
     Indication: PRODUCT USED FOR UNKNOWN INDICATION
     Dosage: 50MG
     Route: 042
  2. EPINEPHRINE. [Suspect]
     Active Substance: EPINEPHRINE
     Indication: PRODUCT USED FOR UNKNOWN INDICATION
     Dosage: 1MG
     Route: 065
  3. LEVO [Suspect]
     Active Substance: LEVOBUPIVACAINE
     Indication: LOCAL ANAESTHESIA
     Dosage: 0.75% OF 30ML
     Route: 014
  4. LEVO [Suspect]
     Active Substance: LEVOBUPIVACAINE
     Dosage: 0.25% OF 10ML
     Route: 014

REACTIONS (8)
  - Cardiac failure [Recovering/Resolving]
  - Pulseless electrical activity [None]
  - Condition aggravated [Recovering/Resolving]
  - Unresponsive to stimuli [None]
  - Renal failure [Recovering/Resolving]
  - Stress cardiomyopathy [Recovering/Resolving]
  - Pulmonary oedema [Recovering/Resolving]
  - Hypotension [Recovering/Resolving]
